FAERS Safety Report 11804279 (Version 3)
Quarter: 2016Q2

REPORT INFORMATION
  Report Type: Spontaneous
  Country: JP (occurrence: JP)
  Receive Date: 20151204
  Receipt Date: 20160420
  Transmission Date: 20160815
  Serious: Yes (Death)
  Sender: FDA-Public Use
  Company Number: JP-BAXTER-2015BAX060906

PATIENT
  Age: 31 Year
  Sex: Male

DRUGS (27)
  1. IFEX [Suspect]
     Active Substance: IFOSFAMIDE
     Route: 065
     Dates: start: 200806, end: 200906
  2. IFEX [Suspect]
     Active Substance: IFOSFAMIDE
     Dosage: 1500 MILLIGRAM X5
     Route: 065
  3. PACLITAXEL. [Concomitant]
     Active Substance: PACLITAXEL
     Dosage: 1 TO 6 COURSES
     Route: 065
     Dates: start: 20100318
  4. CARBOPLATIN. [Concomitant]
     Active Substance: CARBOPLATIN
     Indication: TESTICULAR NEOPLASM
     Dosage: 250 MG X 5
     Route: 065
  5. IRINOTECAN HYDROCHLORIDE HYDRATE [Concomitant]
     Active Substance: IRINOTECAN HYDROCHLORIDE
     Dosage: 1 TO 7 COURSES
     Route: 065
     Dates: start: 20090610
  6. VINBLASTIN [Concomitant]
     Active Substance: VINBLASTINE
     Indication: TESTICULAR NEOPLASM
     Dosage: 4 COURSES OF VIP THERAPY
     Route: 065
  7. IFEX [Suspect]
     Active Substance: IFOSFAMIDE
     Indication: TESTICULAR NEOPLASM
     Dosage: 4 COURSES OF VIP THERAPY (2 )
     Route: 065
  8. CISPLATIN. [Suspect]
     Active Substance: CISPLATIN
     Indication: TESTICULAR NEOPLASM
     Dosage: 2 COURSES OF BEP THERAPY
     Route: 065
     Dates: start: 200804
  9. CISPLATIN. [Suspect]
     Active Substance: CISPLATIN
     Route: 065
     Dates: start: 200804, end: 201010
  10. CISPLATIN. [Suspect]
     Active Substance: CISPLATIN
     Dosage: 1 TO 6 COURSES
     Route: 065
     Dates: start: 20100318
  11. BLEOMYCIN HYDROCHLORIDE [Concomitant]
     Active Substance: BLEOMYCIN HYDROCHLORIDE
     Indication: TESTICULAR NEOPLASM
     Dosage: 2 COURSES OF BEP THERAPY
     Route: 065
     Dates: start: 200804, end: 200808
  12. VP-16 [Concomitant]
     Active Substance: ETOPOSIDE
     Indication: TESTICULAR NEOPLASM
     Dosage: 300 MGX5
     Route: 065
  13. CELLTOP 25 MG, CAPSULE [Suspect]
     Active Substance: ETOPOSIDE
     Indication: TESTICULAR NEOPLASM
     Dosage: 2 COURSES OF BEP THERAPY (500 X2 MG/M2)
     Route: 065
     Dates: start: 200804
  14. CISPLATIN. [Suspect]
     Active Substance: CISPLATIN
     Dosage: 1 TO 7 COURSES 20X 5 MG/M2
     Route: 065
     Dates: start: 20090610
  15. NEDAPLATIN [Concomitant]
     Active Substance: NEDAPLATIN
     Indication: TESTICULAR NEOPLASM
     Dosage: ONE COURSE OF TIN THERAPY
     Route: 065
     Dates: start: 20081013
  16. CARBOPLATIN. [Concomitant]
     Active Substance: CARBOPLATIN
     Route: 065
     Dates: start: 200812
  17. IRINOTECAN HYDROCHLORIDE HYDRATE [Concomitant]
     Active Substance: IRINOTECAN HYDROCHLORIDE
     Route: 065
     Dates: start: 20090128, end: 201002
  18. CISPLATIN. [Suspect]
     Active Substance: CISPLATIN
     Dosage: 4 COURSES OF VIP THERAPY
     Route: 065
  19. NEDAPLATIN [Concomitant]
     Active Substance: NEDAPLATIN
     Dosage: ONE COURSE
     Route: 065
     Dates: start: 20090128
  20. IFEX [Suspect]
     Active Substance: IFOSFAMIDE
     Dosage: 2 GRAM X 5
     Route: 065
     Dates: start: 20081013
  21. IFEX [Suspect]
     Active Substance: IFOSFAMIDE
     Dosage: 2000 MG/BODY X5
     Route: 065
     Dates: start: 20090511
  22. CELLTOP 25 MG, CAPSULE [Suspect]
     Active Substance: ETOPOSIDE
     Route: 065
     Dates: start: 200804, end: 200901
  23. PACLITAXEL. [Concomitant]
     Active Substance: PACLITAXEL
     Indication: TESTICULAR NEOPLASM
     Dosage: ONE COURSE FO TIN THERAPY
     Route: 065
     Dates: start: 20081013, end: 201010
  24. PACLITAXEL. [Concomitant]
     Active Substance: PACLITAXEL
     Route: 065
     Dates: start: 20090511
  25. NEDAPLATIN [Concomitant]
     Active Substance: NEDAPLATIN
     Route: 065
  26. GEMCITABINE HYDROCHLORIDE. [Concomitant]
     Active Substance: GEMCITABINE HYDROCHLORIDE
     Indication: TESTICULAR NEOPLASM
     Dosage: 1 TO 6 COURSES
     Route: 065
     Dates: start: 20100318, end: 201010
  27. IRINOTECAN HYDROCHLORIDE HYDRATE [Concomitant]
     Active Substance: IRINOTECAN HYDROCHLORIDE
     Indication: TESTICULAR NEOPLASM
     Dosage: ONE COURSE
     Route: 065
     Dates: start: 20090128

REACTIONS (2)
  - Bronchopulmonary aspergillosis [Fatal]
  - Myelodysplastic syndrome [Fatal]

NARRATIVE: CASE EVENT DATE: 20131028
